FAERS Safety Report 10475918 (Version 1)
Quarter: 2014Q3

REPORT INFORMATION
  Report Type: Spontaneous
  Country: US (occurrence: None)
  Receive Date: 20140923
  Receipt Date: 20140923
  Transmission Date: 20150326
  Serious: Yes (Hospitalization)
  Sender: FDA-Public Use
  Company Number: FK201403751

PATIENT
  Age: 45 Year
  Sex: Female

DRUGS (3)
  1. IRINOTECAN (MANUFACTURER UNKNOWN) (IRINOTECAN)  (IRINOTECAN) [Suspect]
     Active Substance: IRINOTECAN
     Indication: ASTROCYTOMA
  2. TEMOZOLOMIDE (MANUFACTURER UNKNOWN) (TEMOZOLOMIDE) (TEMOZOLOMIDE) [Suspect]
     Active Substance: TEMOZOLOMIDE
     Indication: ASTROCYTOMA
  3. BEVACIZUMAB (BEVACIZUMAB) (BEVACIZUMAB) [Suspect]
     Active Substance: BEVACIZUMAB
     Indication: ASTROCYTOMA

REACTIONS (4)
  - Intracranial aneurysm [None]
  - Loss of consciousness [None]
  - Hydrocephalus [None]
  - Subarachnoid haemorrhage [None]
